FAERS Safety Report 7802870-3 (Version None)
Quarter: 2011Q4

REPORT INFORMATION
  Report Type: 
  Country: None (occurrence: None)
  Receive Date: 20111007
  Receipt Date: 20110112
  Transmission Date: 20120403
  Serious: No
  Sender: FDA-Public Use
  Company Number: US-MUTUAL PHARMACEUTICAL COMPANY, INC.-QLQN20110001

PATIENT
  Age: 67 Year
  Sex: Male
  Weight: 70.37 kg

DRUGS (4)
  1. SIMVASTATIN [Concomitant]
     Indication: BLOOD CHOLESTEROL INCREASED
     Route: 048
  2. VITAMIN D [Concomitant]
     Route: 048
  3. QUALAQUIN [Suspect]
     Indication: MUSCLE SPASMS
     Route: 048
     Dates: start: 20110111, end: 20110111
  4. ALLEGRA [Concomitant]
     Indication: HYPERSENSITIVITY
     Route: 048

REACTIONS (2)
  - OFF LABEL USE [None]
  - DIARRHOEA [None]
